FAERS Safety Report 11496426 (Version 3)
Quarter: 2016Q3

REPORT INFORMATION
  Report Type: Spontaneous
  Country: US (occurrence: US)
  Receive Date: 20150911
  Receipt Date: 20160929
  Transmission Date: 20161109
  Serious: Yes (Other)
  Sender: FDA-Public Use
  Company Number: US-INSYS THERAPEUTICS, INC-INS201508-000368

PATIENT
  Sex: Male

DRUGS (3)
  1. DILAUDID [Concomitant]
     Active Substance: HYDROMORPHONE HYDROCHLORIDE
  2. SUBSYS [Suspect]
     Active Substance: FENTANYL
     Indication: BACK PAIN
  3. OPANA [Concomitant]
     Active Substance: OXYMORPHONE HYDROCHLORIDE

REACTIONS (3)
  - Hallucination [Recovered/Resolved]
  - Loss of consciousness [Recovered/Resolved]
  - Amnesia [Not Recovered/Not Resolved]
